FAERS Safety Report 20956589 (Version 1)
Quarter: 2022Q2

REPORT INFORMATION
  Report Type: Spontaneous
  Country: US (occurrence: None)
  Receive Date: 20220613
  Receipt Date: 20220613
  Transmission Date: 20220720
  Serious: No
  Sender: FDA-Public Use
  Company Number: None

PATIENT
  Age: 58 Year
  Sex: 0

DRUGS (4)
  1. BEBTELOVIMAB [Suspect]
     Active Substance: BEBTELOVIMAB
     Indication: COVID-19
     Route: 042
     Dates: start: 20220610, end: 20220610
  2. Amlodipine (Norvasc)5 mg tabs [Concomitant]
  3. Potassium bicarbonate 25mEq tabs [Concomitant]
  4. Amiloride (Midamor) 5mg tabs [Concomitant]

REACTIONS (4)
  - Back pain [None]
  - Blood pressure increased [None]
  - Oxygen saturation decreased [None]
  - Pain [None]

NARRATIVE: CASE EVENT DATE: 20220610
